FAERS Safety Report 21189374 (Version 2)
Quarter: 2022Q3

REPORT INFORMATION
  Report Type: Report from Study
  Country: TW (occurrence: TW)
  Receive Date: 20220809
  Receipt Date: 20220909
  Transmission Date: 20221027
  Serious: Yes (Other)
  Sender: FDA-Public Use
  Company Number: TW-BAYER-2022A109329

PATIENT
  Age: 76 Year
  Sex: Male

DRUGS (4)
  1. EYLEA [Suspect]
     Active Substance: AFLIBERCEPT
     Indication: Neovascular age-related macular degeneration
     Dosage: 0.05 ML, ONCE; SOLUTION FOR INJECTION, STRENGTH: 40MG/ML
     Route: 031
     Dates: start: 202204, end: 202204
  2. EYLEA [Suspect]
     Active Substance: AFLIBERCEPT
     Dosage: 0.05 ML, ONCE; SOLUTION FOR INJECTION, STRENGTH: 40MG/ML
     Route: 031
     Dates: start: 20220512, end: 20220512
  3. EYLEA [Suspect]
     Active Substance: AFLIBERCEPT
     Dosage: 0.05 ML, ONCE; SOLUTION FOR INJECTION, STRENGTH: 40MG/ML
     Route: 031
     Dates: start: 20220629, end: 20220629
  4. EYLEA [Suspect]
     Active Substance: AFLIBERCEPT
     Dosage: 0.05 ML, ONCE; SOLUTION FOR INJECTION, STRENGTH: 40MG/ML
     Route: 031
     Dates: start: 20220803

REACTIONS (4)
  - Diabetes mellitus [Recovering/Resolving]
  - Product prescribing issue [Unknown]
  - Inappropriate schedule of product administration [Unknown]
  - Inappropriate schedule of product administration [Unknown]

NARRATIVE: CASE EVENT DATE: 20220629
